FAERS Safety Report 21205456 (Version 7)
Quarter: 2022Q4

REPORT INFORMATION
  Report Type: Spontaneous
  Country: CA (occurrence: CA)
  Receive Date: 20220812
  Receipt Date: 20221215
  Transmission Date: 20230112
  Serious: Yes (Hospitalization, Other)
  Sender: FDA-Public Use
  Company Number: CA-CELLTRION INC.-2022CA010914

PATIENT

DRUGS (9)
  1. INFLECTRA [Suspect]
     Active Substance: INFLIXIMAB-DYYB
     Indication: Colitis ulcerative
     Dosage: 5 MG/KG, 0, 2, 6 WEEKS, THEN EVERY 8 WEEKS
     Route: 042
     Dates: start: 20220617, end: 20221119
  2. INFLECTRA [Suspect]
     Active Substance: INFLIXIMAB-DYYB
     Dosage: 5 MG/KG ,0, 2, 6 WEEKS, THEN EVERY 8 WEEKS
     Route: 042
     Dates: start: 20220630
  3. INFLECTRA [Suspect]
     Active Substance: INFLIXIMAB-DYYB
     Dosage: 5 MG/KG ,0, 2, 6 WEEKS, THEN EVERY 8 WEEKS
     Route: 042
     Dates: start: 20220730
  4. INFLECTRA [Suspect]
     Active Substance: INFLIXIMAB-DYYB
     Dosage: 5 MG/KG ,0, 2, 6 WEEKS, THEN EVERY 8 WEEKS
     Route: 042
     Dates: start: 20220923
  5. INFLECTRA [Suspect]
     Active Substance: INFLIXIMAB-DYYB
     Dosage: 300 MG
     Route: 042
     Dates: start: 20221119
  6. INFLECTRA [Suspect]
     Active Substance: INFLIXIMAB-DYYB
     Dosage: 1 DF, ADDITIONAL DOSE
     Route: 042
     Dates: start: 20221128, end: 20221128
  7. IMURAN [Concomitant]
     Active Substance: AZATHIOPRINE
     Dosage: 1 DF
  8. PREDNISONE [Concomitant]
     Active Substance: PREDNISONE
     Dosage: 1 DF
  9. XELJANZ [Concomitant]
     Active Substance: TOFACITINIB CITRATE
     Indication: Colitis ulcerative
     Dosage: 1 DF
     Route: 048
     Dates: start: 20221202

REACTIONS (8)
  - Systemic lupus erythematosus [Unknown]
  - Condition aggravated [Recovered/Resolved]
  - Therapeutic product effect incomplete [Unknown]
  - Weight increased [Unknown]
  - Epistaxis [Unknown]
  - Platelet count decreased [Unknown]
  - Arthralgia [Not Recovered/Not Resolved]
  - Urinary tract infection [Recovered/Resolved]

NARRATIVE: CASE EVENT DATE: 20220101
